FAERS Safety Report 7548279-1 (Version None)
Quarter: 2011Q2

REPORT INFORMATION
  Report Type: 
  Country: None (occurrence: None)
  Receive Date: 20110615
  Receipt Date: 20110610
  Transmission Date: 20111010
  Serious: No
  Sender: FDA-Public Use
  Company Number: US-PFIZER INC-2011094783

PATIENT
  Sex: Male

DRUGS (3)
  1. GEODON [Suspect]
     Indication: MOOD SWINGS
     Dosage: UNK
  2. LAMICTAL [Concomitant]
     Indication: MOOD SWINGS
     Dosage: UNK
  3. GEODON [Suspect]
     Indication: PSYCHOTIC DISORDER
     Dosage: 160 MG, 4X/DAY
     Route: 048

REACTIONS (2)
  - ABNORMAL DREAMS [None]
  - SEDATION [None]
